FAERS Safety Report 7494997-3 (Version None)
Quarter: 2011Q2

REPORT INFORMATION
  Report Type: 
  Country: None (occurrence: None)
  Receive Date: 20110520
  Receipt Date: 20110511
  Transmission Date: 20111010
  Serious: Yes (Hospitalization, Disabling)
  Sender: FDA-Public Use
  Company Number: FR-ABBOTT-10P-056-0660110-01

PATIENT
  Sex: Male
  Weight: 71 kg

DRUGS (12)
  1. IRBESARTAN + HYDROCHLOROTHIAZIDE [Concomitant]
     Indication: HYPERTENSION
     Route: 048
     Dates: start: 20040101, end: 20100424
  2. KALETRA [Suspect]
     Dates: start: 20100601, end: 20100729
  3. PREVISCAN [Concomitant]
     Indication: EMBOLISM
     Route: 048
     Dates: start: 20040706, end: 20100424
  4. CRESTOR [Concomitant]
     Dates: start: 20100510
  5. LEXOMIL [Concomitant]
     Dates: start: 20100510, end: 20101219
  6. KALETRA [Suspect]
     Indication: HIV INFECTION
     Route: 048
     Dates: start: 20091112, end: 20100526
  7. OMEPRAZOLE [Concomitant]
     Indication: OESOPHAGITIS HAEMORRHAGIC
     Route: 048
     Dates: start: 20040119, end: 20100424
  8. OMEPRAZOLE [Concomitant]
     Dates: start: 20100510, end: 20100604
  9. CRESTOR [Concomitant]
     Indication: DYSLIPIDAEMIA
     Route: 048
     Dates: start: 20061213, end: 20100424
  10. IRBESARTAN + HYDROCHLOROTHIAZIDE [Concomitant]
     Dates: start: 20100510
  11. PREVISCAN [Concomitant]
     Dates: start: 20100510, end: 20100610
  12. LEXOMIL [Concomitant]
     Indication: INSOMNIA
     Route: 048
     Dates: start: 20091207, end: 20100424

REACTIONS (3)
  - GRAND MAL CONVULSION [None]
  - CONFUSIONAL STATE [None]
  - LOSS OF CONSCIOUSNESS [None]
